FAERS Safety Report 9397956 (Version 1)
Quarter: 2013Q3

REPORT INFORMATION
  Report Type: Spontaneous
  Country: NL (occurrence: NL)
  Receive Date: 20130712
  Receipt Date: 20130712
  Transmission Date: 20140515
  Serious: Yes (Hospitalization, Other)
  Sender: FDA-Public Use
  Company Number: PHHY2013NL072217

PATIENT
  Sex: 0

DRUGS (6)
  1. OLANZAPINE [Suspect]
     Indication: DELIRIUM
     Dosage: 5 MG, PER DAY
  2. PRAMIPEXOLE [Interacting]
     Indication: RESTLESS LEGS SYNDROME
     Dosage: 0.125 MG, QD IN THE EVENING
  3. MIRTAZAPINE [Concomitant]
     Dosage: 30 MG, PER DAY
  4. MIRTAZAPINE [Concomitant]
     Dosage: 15 MG, PER DAY
  5. OXAZEPAM [Concomitant]
     Dosage: 10?30 MG/DAY
  6. LITHIUM [Concomitant]

REACTIONS (5)
  - Mania [Unknown]
  - Agitation [Unknown]
  - Insomnia [Unknown]
  - Hypomania [Unknown]
  - Drug interaction [Unknown]
